FAERS Safety Report 23799949 (Version 1)
Quarter: 2024Q2

REPORT INFORMATION
  Report Type: Spontaneous
  Country: CN (occurrence: CN)
  Receive Date: 20240430
  Receipt Date: 20240430
  Transmission Date: 20240715
  Serious: Yes (Hospitalization, Other)
  Sender: FDA-Public Use
  Company Number: CN-ELI_LILLY_AND_COMPANY-CN202404017301

PATIENT
  Age: 66 Year
  Sex: Male
  Weight: 72 kg

DRUGS (6)
  1. GEMCITABINE HYDROCHLORIDE [Suspect]
     Active Substance: GEMCITABINE HYDROCHLORIDE
     Indication: Ureteric cancer
     Dosage: 1600 MG, SINGLE (1 TIME 8 DAYS )
     Route: 041
     Dates: start: 20240329, end: 20240405
  2. TORIPALIMAB [Suspect]
     Active Substance: TORIPALIMAB
     Indication: Ureteric cancer
     Dosage: 240 MG, SINGLE
     Route: 041
     Dates: start: 20240401, end: 20240401
  3. CISPLATIN [Suspect]
     Active Substance: CISPLATIN
     Indication: Ureteric cancer
     Dosage: 40 MG, SINGLE
     Route: 041
     Dates: start: 20240329, end: 20240331
  4. SODIUM CHLORIDE [Concomitant]
     Active Substance: SODIUM CHLORIDE
     Indication: Medication dilution
     Dosage: 500 ML
     Route: 042
     Dates: start: 20240329, end: 20240331
  5. SODIUM CHLORIDE [Concomitant]
     Active Substance: SODIUM CHLORIDE
     Dosage: 50 ML
     Route: 042
     Dates: start: 20240329, end: 20240405
  6. SODIUM CHLORIDE [Concomitant]
     Active Substance: SODIUM CHLORIDE
     Dosage: 100 ML
     Route: 042
     Dates: start: 20240401

REACTIONS (2)
  - Dermatitis allergic [Recovering/Resolving]
  - Myelosuppression [Recovering/Resolving]

NARRATIVE: CASE EVENT DATE: 20240407
